FAERS Safety Report 9479465 (Version 1)
Quarter: 2013Q3

REPORT INFORMATION
  Report Type: Spontaneous
  Country: US (occurrence: US)
  Receive Date: 20130827
  Receipt Date: 20130827
  Transmission Date: 20140515
  Serious: No
  Sender: FDA-Public Use
  Company Number: US-BAYER-2013-103181

PATIENT
  Age: 77 Year
  Sex: Female
  Weight: 68 kg

DRUGS (9)
  1. CITRACAL CALCIUM + D SLOW RELEASE 1200 [Suspect]
     Dosage: 2 DF, QD WITH FOOD
     Route: 048
     Dates: start: 201206
  2. ALEVE CAPLET [Suspect]
     Dosage: 1 DF, PRN
     Route: 048
  3. FOLIC ACID [Concomitant]
  4. METHOTREXATE [Concomitant]
  5. ATENOLOL W/HYDROCHLOROTHIAZIDE [Concomitant]
  6. OMEPRAZOLE [Concomitant]
  7. CHLORDIAZEPOXIDE [Concomitant]
  8. MAG-OX [Concomitant]
  9. ALENDRONATE SODIUM [Concomitant]

REACTIONS (1)
  - Liver function test [Not Recovered/Not Resolved]
